FAERS Safety Report 18463495 (Version 3)
Quarter: 2020Q4

REPORT INFORMATION
  Report Type: Spontaneous
  Country: US (occurrence: US)
  Receive Date: 20201104
  Receipt Date: 20201227
  Transmission Date: 20210114
  Serious: Yes (Hospitalization)
  Sender: FDA-Public Use
  Company Number: US-TEVA-2020-US-1844973

PATIENT
  Age: 67 Year
  Sex: Male

DRUGS (1)
  1. SYNRIBO [Suspect]
     Active Substance: OMACETAXINE MEPESUCCINATE
     Indication: CHRONIC MYELOID LEUKAEMIA
     Dosage: FORM OF ADMIN: VIAL, DOSE: 2.96MG SUBQ, BIDX14 DAYS/28 DAY CYCLE; DAILY FOR 21 DAYS ON, 7 OFF
     Route: 058
     Dates: start: 20201021

REACTIONS (8)
  - Nasopharyngitis [Unknown]
  - Influenza like illness [Unknown]
  - Expired product administered [Unknown]
  - Chronic myeloid leukaemia [Unknown]
  - Vomiting [Unknown]
  - Diarrhoea [Unknown]
  - Nausea [Unknown]
  - Retching [Unknown]

NARRATIVE: CASE EVENT DATE: 2020
